FAERS Safety Report 7383304-2 (Version None)
Quarter: 2011Q1

REPORT INFORMATION
  Report Type: 
  Country: None (occurrence: None)
  Receive Date: 20110324
  Receipt Date: 20110324
  Transmission Date: 20110831
  Serious: Yes (Hospitalization)
  Sender: FDA-Public Use
  Company Number: None

PATIENT
  Age: 55 Year
  Sex: Male
  Weight: 151.2 kg

DRUGS (2)
  1. VANCOMYCIN HCL [Suspect]
     Indication: SEPSIS
     Dosage: 1.5GM Q12H IV BOLUS
     Route: 040
     Dates: start: 20110116, end: 20110131
  2. HEPARIN [Suspect]
     Indication: THROMBOSIS PROPHYLAXIS
     Dosage: 5000 UNITS Q12H SQ
     Route: 058
     Dates: start: 20110106, end: 20110130

REACTIONS (2)
  - HEPARIN-INDUCED THROMBOCYTOPENIA [None]
  - ANTI-PLATELET ANTIBODY POSITIVE [None]
